FAERS Safety Report 15810532 (Version 1)
Quarter: 2019Q1

REPORT INFORMATION
  Report Type: Spontaneous
  Country: US (occurrence: US)
  Receive Date: 20190111
  Receipt Date: 20190111
  Transmission Date: 20190417
  Serious: No
  Sender: FDA-Public Use
  Company Number: US-ROCHE-2119443

PATIENT
  Age: 15 Year
  Sex: Male

DRUGS (1)
  1. RITUXAN [Suspect]
     Active Substance: RITUXIMAB
     Indication: FACTOR VIII DEFICIENCY
     Dosage: ONGOING: UNKNOWN
     Route: 065

REACTIONS (3)
  - Off label use [Unknown]
  - Immune system disorder [Unknown]
  - Intentional product use issue [Unknown]
